FAERS Safety Report 8406013-7 (Version None)
Quarter: 2012Q2

REPORT INFORMATION
  Report Type: 
  Country: None (occurrence: None)
  Receive Date: 20120604
  Receipt Date: 20120523
  Transmission Date: 20120825
  Serious: Yes (Hospitalization, Congenital Anomaly)
  Sender: FDA-Public Use
  Company Number: DE-JNJFOC-20120517111

PATIENT
  Sex: Female
  Weight: 2.75 kg

DRUGS (10)
  1. CLOBAZAM [Suspect]
     Route: 064
     Dates: start: 20110718
  2. CARBAMAZEPINE [Suspect]
     Indication: FOETAL EXPOSURE DURING PREGNANCY
     Route: 064
     Dates: start: 20110608, end: 20111013
  3. LAMOTRIGINE [Suspect]
     Route: 064
     Dates: start: 20110329
  4. TOPIRAMATE [Suspect]
     Indication: FOETAL EXPOSURE DURING PREGNANCY
     Route: 064
     Dates: start: 20110111, end: 20111013
  5. VALPROIC ACID [Suspect]
     Indication: FOETAL EXPOSURE DURING PREGNANCY
     Route: 064
     Dates: start: 20110111, end: 20110329
  6. LEVOTHYROXINE SODIUM [Suspect]
     Indication: FOETAL EXPOSURE DURING PREGNANCY
     Route: 064
     Dates: start: 20110111, end: 20111013
  7. LAMOTRIGINE [Suspect]
     Indication: FOETAL EXPOSURE DURING PREGNANCY
     Route: 064
     Dates: end: 20110525
  8. CLOBAZAM [Suspect]
     Indication: FOETAL EXPOSURE DURING PREGNANCY
     Route: 064
     Dates: end: 20111013
  9. CLOBAZAM [Suspect]
     Route: 064
     Dates: start: 20110329
  10. FOLIC ACID [Suspect]
     Indication: FOETAL EXPOSURE DURING PREGNANCY
     Route: 064
     Dates: start: 20110329, end: 20110607

REACTIONS (5)
  - VENTRICULAR SEPTAL DEFECT [None]
  - CONGENITAL CYSTIC KIDNEY DISEASE [None]
  - CONGENITAL ARTERIAL MALFORMATION [None]
  - ATRIAL SEPTAL DEFECT [None]
  - SMALL FOR DATES BABY [None]
